FAERS Safety Report 19306801 (Version 2)
Quarter: 2021Q3

REPORT INFORMATION
  Report Type: Spontaneous
  Country: US (occurrence: US)
  Receive Date: 20210525
  Receipt Date: 20210723
  Transmission Date: 20211014
  Serious: Yes (Hospitalization, Other)
  Sender: FDA-Public Use
  Company Number: US-ASTRAZENECA-2021A448254

PATIENT
  Age: 27050 Day
  Sex: Female
  Weight: 150 kg

DRUGS (1)
  1. EKLIRA [Suspect]
     Active Substance: ACLIDINIUM BROMIDE
     Indication: CHRONIC OBSTRUCTIVE PULMONARY DISEASE
     Dosage: 400 TWO TIMES A DAY
     Route: 055

REACTIONS (11)
  - Mental status changes [Unknown]
  - Lower limb fracture [Recovering/Resolving]
  - Diverticulum [Recovering/Resolving]
  - Pulmonary hypertension [Unknown]
  - Anaemia [Unknown]
  - Device delivery system issue [Unknown]
  - Device malfunction [Unknown]
  - Incorrect dose administered by device [Not Recovered/Not Resolved]
  - Clostridium difficile colitis [Recovering/Resolving]
  - Fall [Recovering/Resolving]
  - Sleep apnoea syndrome [Unknown]

NARRATIVE: CASE EVENT DATE: 20210309
